FAERS Safety Report 10166760 (Version 1)
Quarter: 2014Q2

REPORT INFORMATION
  Report Type: Spontaneous
  Country: US (occurrence: None)
  Receive Date: 20140508
  Receipt Date: 20140508
  Transmission Date: 20141212
  Serious: Yes (Hospitalization, Other)
  Sender: FDA-Public Use
  Company Number: KV201400082

PATIENT
  Age: 26 Year
  Sex: Female

DRUGS (1)
  1. MAKENA (HYDROXYPROGESTERONE CAPROATE 250 MG/ML) INJECTION, 250MG/ML [Suspect]
     Indication: PREMATURE DELIVERY
     Route: 030
     Dates: start: 20140217, end: 20140421

REACTIONS (6)
  - Uterine rupture [None]
  - Aggression [None]
  - Pain [None]
  - Discomfort [None]
  - Caesarean section [None]
  - Exposure during pregnancy [None]
